FAERS Safety Report 15499452 (Version 2)
Quarter: 2018Q4

REPORT INFORMATION
  Report Type: Report from Study
  Country: US (occurrence: US)
  Receive Date: 20181015
  Receipt Date: 20181120
  Transmission Date: 20190205
  Serious: No
  Sender: FDA-Public Use
  Company Number: US-B.I. PHARMACEUTICALS,INC./RIDGEFIELD-2018-BI-049778

PATIENT
  Sex: Female
  Weight: 62 kg

DRUGS (2)
  1. OFEV [Suspect]
     Active Substance: NINTEDANIB
     Indication: IDIOPATHIC PULMONARY FIBROSIS
     Route: 048
     Dates: start: 2015, end: 2017
  2. OFEV [Suspect]
     Active Substance: NINTEDANIB
     Route: 048
     Dates: start: 20170917

REACTIONS (11)
  - Diarrhoea [Not Recovered/Not Resolved]
  - Dental caries [Not Recovered/Not Resolved]
  - Onychoclasis [Not Recovered/Not Resolved]
  - Dry mouth [Not Recovered/Not Resolved]
  - Decreased appetite [Recovered/Resolved]
  - Tooth disorder [Not Recovered/Not Resolved]
  - Abnormal loss of weight [Recovered/Resolved]
  - Dental caries [Recovered/Resolved]
  - Tooth disorder [Not Recovered/Not Resolved]
  - Tooth fracture [Recovered/Resolved]
  - Tooth fracture [Not Recovered/Not Resolved]

NARRATIVE: CASE EVENT DATE: 2015
